FAERS Safety Report 8487230-7 (Version None)
Quarter: 2012Q3

REPORT INFORMATION
  Report Type: 
  Country: None (occurrence: None)
  Receive Date: 20120705
  Receipt Date: 20120604
  Transmission Date: 20120928
  Serious: Yes (Other)
  Sender: FDA-Public Use
  Company Number: BR-ROCHE-1083754

PATIENT
  Sex: Female
  Weight: 61 kg

DRUGS (1)
  1. ISOTRETINOIN [Suspect]
     Indication: PRODUCT USED FOR UNKNOWN INDICATION
     Dosage: TOTAL CUMULATIVE DOSE 127 MG/KG
     Route: 065
     Dates: start: 20060712, end: 20061210

REACTIONS (1)
  - WEIGHT INCREASED [None]
